FAERS Safety Report 7303823-4 (Version None)
Quarter: 2011Q1

REPORT INFORMATION
  Report Type: 
  Country: None (occurrence: None)
  Receive Date: 20110221
  Receipt Date: 20110214
  Transmission Date: 20110831
  Serious: Yes (Hospitalization, Congenital Anomaly)
  Sender: FDA-Public Use
  Company Number: A0871437A

PATIENT
  Sex: Female
  Weight: 2.7 kg

DRUGS (5)
  1. IRON [Concomitant]
     Route: 064
  2. DECONGESTANT [Concomitant]
     Route: 064
  3. PRENATAL VITAMINS [Concomitant]
     Route: 064
  4. AMPICILLIN [Concomitant]
     Route: 064
  5. PAXIL [Suspect]
     Indication: PRODUCT USED FOR UNKNOWN INDICATION
     Route: 064

REACTIONS (11)
  - ATRIAL SEPTAL DEFECT [None]
  - RENAL APLASIA [None]
  - BICUSPID AORTIC VALVE [None]
  - FAILURE TO THRIVE [None]
  - RENAL DYSPLASIA [None]
  - AORTIC STENOSIS [None]
  - FACIAL ASYMMETRY [None]
  - DRUG EXPOSURE DURING PREGNANCY [None]
  - VENTRICULAR SEPTAL DEFECT [None]
  - KIDNEY MALFORMATION [None]
  - CONGENITAL CYSTIC KIDNEY DISEASE [None]
